FAERS Safety Report 9779472 (Version 1)
Quarter: 2013Q4

REPORT INFORMATION
  Report Type: Spontaneous
  Country: US (occurrence: US)
  Receive Date: 20131223
  Receipt Date: 20131223
  Transmission Date: 20140711
  Serious: Yes (Other)
  Sender: FDA-Public Use
  Company Number: US-PURDUE-USA-2013-0109780

PATIENT
  Sex: Male

DRUGS (1)
  1. BUTRANS [Suspect]
     Indication: PRODUCT USED FOR UNKNOWN INDICATION
     Dosage: 20 MCG/HR, WEEKLY
     Route: 062
     Dates: start: 201307

REACTIONS (4)
  - Fluid retention [Not Recovered/Not Resolved]
  - Weight increased [Recovering/Resolving]
  - Cholecystectomy [Unknown]
  - Abdominal discomfort [Not Recovered/Not Resolved]
